FAERS Safety Report 9171402 (Version 2)
Quarter: 2014Q1

REPORT INFORMATION
  Report Type: Report from Study
  Country: CA (occurrence: CA)
  Receive Date: 20130319
  Receipt Date: 20140116
  Transmission Date: 20141002
  Serious: Yes (Other)
  Sender: FDA-Public Use
  Company Number: CA-ROCHE-1076495

PATIENT
  Age: 72 Year
  Sex: Female
  Weight: 70 kg

DRUGS (7)
  1. TOCILIZUMAB [Suspect]
     Indication: RHEUMATOID ARTHRITIS
     Route: 042
     Dates: start: 20120328
  2. DILTIAZEM [Concomitant]
  3. RAMIPRIL [Concomitant]
  4. LIPITOR [Concomitant]
  5. ARTHROTEC [Concomitant]
  6. VITAMIN D [Concomitant]
  7. CALCIUM [Concomitant]

REACTIONS (6)
  - Gastric polyps [Recovering/Resolving]
  - Gastritis erosive [Unknown]
  - Red blood cell sedimentation rate increased [Unknown]
  - Gastritis [Unknown]
  - Adenoma benign [Unknown]
  - Weight increased [Not Recovered/Not Resolved]
